FAERS Safety Report 20879077 (Version 1)
Quarter: 2022Q2

REPORT INFORMATION
  Report Type: Spontaneous
  Country: US (occurrence: US)
  Receive Date: 20220526
  Receipt Date: 20220526
  Transmission Date: 20220721
  Serious: No
  Sender: FDA-Public Use
  Company Number: US-RADIUS HEALTH INC.-2021US003583

PATIENT
  Age: 64 Year
  Sex: Female

DRUGS (2)
  1. TYMLOS [Suspect]
     Active Substance: ABALOPARATIDE
     Indication: Osteoporosis
     Dosage: 80 MICROGRAM, QD
     Route: 058
     Dates: start: 202105
  2. TYMLOS [Suspect]
     Active Substance: ABALOPARATIDE
     Dosage: 80 MICROGRAM, QD
     Route: 058
     Dates: start: 202107

REACTIONS (12)
  - Anxiety [Not Recovered/Not Resolved]
  - Infection [Unknown]
  - Injection site discomfort [Not Recovered/Not Resolved]
  - Pain in extremity [Unknown]
  - Headache [Not Recovered/Not Resolved]
  - Dizziness [Unknown]
  - Nausea [Unknown]
  - Vomiting [Unknown]
  - Arthralgia [Unknown]
  - Product quality issue [Unknown]
  - Injection site haemorrhage [Not Recovered/Not Resolved]
  - Bone pain [Not Recovered/Not Resolved]

NARRATIVE: CASE EVENT DATE: 20210701
